FAERS Safety Report 7965946-6 (Version None)
Quarter: 2011Q4

REPORT INFORMATION
  Report Type: 
  Country: None (occurrence: None)
  Receive Date: 20111208
  Receipt Date: 20111207
  Transmission Date: 20120403
  Serious: Yes (Other)
  Sender: FDA-Public Use
  Company Number: US-PFIZER INC-2011299099

PATIENT
  Sex: Female
  Weight: 126 kg

DRUGS (9)
  1. SEROQUEL [Concomitant]
     Indication: BIPOLAR DISORDER
     Dosage: 150 MG, 1X/DAY
  2. SIMCOR [Concomitant]
     Dosage: 500/20 MG, 1X/DAY
  3. NEURONTIN [Suspect]
     Indication: NEUROPATHY PERIPHERAL
     Dosage: 100 MG, 1X/DAY
     Route: 048
     Dates: start: 20111206, end: 20111206
  4. FUROSEMIDE [Concomitant]
     Dosage: 120 MG, 1X/DAY
  5. VENLAFAXINE [Concomitant]
     Dosage: UNK
  6. HUMULIN 70/30 [Concomitant]
     Dosage: UNK, 1X/DAY
  7. GEMFIBROZIL [Concomitant]
     Dosage: 600 MG, 1X/DAY
  8. METFORMIN [Concomitant]
     Dosage: 1000 MG, 1X/DAY
  9. LITHIUM [Concomitant]
     Indication: BIPOLAR DISORDER
     Dosage: 900 MG, 1X/DAY

REACTIONS (4)
  - GAIT DISTURBANCE [None]
  - HYPOAESTHESIA [None]
  - OEDEMA PERIPHERAL [None]
  - ORAL DISORDER [None]
